FAERS Safety Report 6171262-8 (Version None)
Quarter: 2009Q2

REPORT INFORMATION
  Report Type: 
  Country: None (occurrence: None)
  Receive Date: 20090428
  Receipt Date: 20090428
  Transmission Date: 20091009
  Serious: No
  Sender: FDA-Public Use
  Company Number: None

PATIENT
  Age: 25 Year
  Sex: Female
  Weight: 68.0396 kg

DRUGS (4)
  1. SERTRALINE [Suspect]
     Indication: ANXIETY
     Dosage: 100 MG ONCE DAILY PO
     Route: 048
     Dates: start: 20010601, end: 20090425
  2. SERTRALINE [Suspect]
     Indication: DEPRESSION
     Dosage: 100 MG ONCE DAILY PO
     Route: 048
     Dates: start: 20010601, end: 20090425
  3. SERTRALINE [Suspect]
     Indication: ANXIETY
     Dosage: 25 MG ONCE DAILY PO
     Route: 048
     Dates: start: 20070115, end: 20090425
  4. SERTRALINE [Suspect]
     Indication: DEPRESSION
     Dosage: 25 MG ONCE DAILY PO
     Route: 048
     Dates: start: 20070115, end: 20090425

REACTIONS (5)
  - ANOREXIA [None]
  - ANXIETY [None]
  - CONFUSIONAL STATE [None]
  - INSOMNIA [None]
  - PANIC ATTACK [None]
